FAERS Safety Report 5294722-0 (Version None)
Quarter: 2007Q2

REPORT INFORMATION
  Report Type: 
  Country: None (occurrence: None)
  Receive Date: 20070406
  Receipt Date: 20070327
  Transmission Date: 20071010
  Serious: Yes (Other)
  Sender: FDA-Public Use
  Company Number: SPV1-2007-01631

PATIENT
  Age: 15 Year
  Sex: Female
  Weight: 68 kg

DRUGS (2)
  1. ADDERALL XR(AMPHETAMINE ASPARTATE, AMPHETAMINE SULFATE, DEXTROAMPHETAM [Suspect]
     Indication: ATTENTION DEFICIT/HYPERACTIVITY DISORDER
     Dosage: SEE IMAGE
     Dates: start: 20061101, end: 20070221
  2. ADDERALL XR(AMPHETAMINE ASPARTATE, AMPHETAMINE SULFATE, DEXTROAMPHETAM [Suspect]
     Indication: ATTENTION DEFICIT/HYPERACTIVITY DISORDER
     Dosage: SEE IMAGE
     Dates: start: 20070225

REACTIONS (23)
  - ABDOMINAL PAIN UPPER [None]
  - AMNESIA [None]
  - ANOREXIA [None]
  - ASTHENIA [None]
  - CIRCADIAN RHYTHM SLEEP DISORDER [None]
  - CONDITION AGGRAVATED [None]
  - CONTUSION [None]
  - DEAFNESS [None]
  - DEHYDRATION [None]
  - DIZZINESS [None]
  - FALL [None]
  - FEELING ABNORMAL [None]
  - HEADACHE [None]
  - INJURY [None]
  - INSOMNIA [None]
  - LOSS OF CONSCIOUSNESS [None]
  - PALLOR [None]
  - SOMNOLENCE [None]
  - SWELLING [None]
  - TINNITUS [None]
  - VERTIGO [None]
  - VISION BLURRED [None]
  - WEIGHT DECREASED [None]
